FAERS Safety Report 4996018-0 (Version None)
Quarter: 2006Q2

REPORT INFORMATION
  Report Type: 
  Country: None (occurrence: None)
  Receive Date: 20060508
  Receipt Date: 20060428
  Transmission Date: 20061013
  Serious: Yes (Hospitalization)
  Sender: FDA-Public Use
  Company Number: US-MERCK-0605USA00046

PATIENT
  Age: 72 Year
  Sex: Female
  Weight: 100 kg

DRUGS (10)
  1. VIOXX [Suspect]
     Indication: ARTHRITIS
     Route: 048
     Dates: start: 20010801, end: 20040601
  2. VIOXX [Suspect]
     Route: 048
     Dates: start: 20010801, end: 20040601
  3. TRAZODONE HYDROCHLORIDE [Concomitant]
     Route: 065
  4. CLONAZEPAM [Concomitant]
     Route: 065
  5. CIPRO [Concomitant]
     Route: 065
  6. PREMARIN [Concomitant]
     Route: 065
  7. EFFEXOR [Concomitant]
     Route: 065
  8. PLAVIX [Concomitant]
     Route: 065
  9. LIPITOR [Concomitant]
     Route: 065
  10. NITROFURANTOIN [Concomitant]
     Route: 065

REACTIONS (1)
  - MYOCARDIAL INFARCTION [None]
